FAERS Safety Report 9040047 (Version 1)
Quarter: 2013Q1

REPORT INFORMATION
  Report Type: Report from Study
  Country: US (occurrence: US)
  Receive Date: 20130130
  Receipt Date: 20130130
  Transmission Date: 20140127
  Serious: No
  Sender: FDA-Public Use
  Company Number: US-ABBOTT-12P-163-0950724-00

PATIENT
  Age: 30 None
  Sex: Male
  Weight: 83.08 kg

DRUGS (6)
  1. HUMIRA 40 MG/0.8 ML PEN [Suspect]
     Indication: CROHN^S DISEASE
     Dosage: EVERY OTHER WEEK IN ERROR
     Dates: start: 20120410
  2. HUMIRA 40 MG/0.8 ML PEN [Suspect]
     Dates: start: 20120402
  3. OXYCODONE [Concomitant]
     Indication: PAIN
     Dosage: 10/650 4 TIMES DAILY PRN
  4. ZOFRAN [Concomitant]
     Indication: NAUSEA
  5. TRAZODONE [Concomitant]
     Indication: INSOMNIA
     Dosage: TWICE DAILY AT BEDTIME
  6. WELLBUTRIN [Concomitant]
     Indication: DEPRESSION

REACTIONS (2)
  - Accidental overdose [Recovered/Resolved]
  - Incorrect dose administered [Not Recovered/Not Resolved]
